FAERS Safety Report 16850854 (Version 1)
Quarter: 2019Q3

REPORT INFORMATION
  Report Type: Spontaneous
  Country: US (occurrence: US)
  Receive Date: 20190925
  Receipt Date: 20190925
  Transmission Date: 20191005
  Serious: No
  Sender: FDA-Public Use
  Company Number: US-THERAPEUTICSMD-2019TMD02096

PATIENT
  Age: 55 Year
  Sex: Female
  Weight: 55.1 kg

DRUGS (12)
  1. MULTIVITAMIN [Concomitant]
     Active Substance: VITAMINS
     Dosage: UNK, 1X/DAY
  2. TESTOSTERONE IMPLANT [Concomitant]
     Active Substance: TESTOSTERONE
     Dosage: EVERY 3 MONTHS
  3. IMVEXXY [Suspect]
     Active Substance: ESTRADIOL
     Indication: VULVOVAGINAL BURNING SENSATION
     Dosage: 4 ?G, 1X/DAY RIGHT BEFORE BEDTIME
     Route: 067
     Dates: start: 20190718
  4. AMBIEN [Concomitant]
     Active Substance: ZOLPIDEM TARTRATE
     Dosage: 10 MG, 1X/DAY
  5. ACYCLOVIR. [Concomitant]
     Active Substance: ACYCLOVIR
     Dosage: 200 MG, 1X/DAY
  6. ESTRADIOL/ESTRIOL/ PROGESTERONE (COMPOUNDED CAPSULE) [Concomitant]
     Dosage: UNK, 4X/WEEK
  7. VITAMIN D [Concomitant]
     Active Substance: VITAMIN D NOS
     Dosage: 4000 IU, 1X/DAY
  8. MAGNESIUM [Concomitant]
     Active Substance: MAGNESIUM
     Dosage: 250 MG, 1X/DAY
  9. IMVEXXY [Suspect]
     Active Substance: ESTRADIOL
     Indication: ATROPHIC VULVOVAGINITIS
     Dosage: 4 ?G, 1X/DAY RIGHT BEFORE BEDTIME
     Route: 067
     Dates: start: 201904, end: 201904
  10. OMEGA 3 FISH OIL [Concomitant]
     Active Substance: FISH OIL\OMEGA-3 FATTY ACIDS
     Dosage: 1000 MG, 1X/DAY
  11. CYMBALTA [Concomitant]
     Active Substance: DULOXETINE HYDROCHLORIDE
     Dosage: 60 MG, 1X/DAY
  12. CRANBERRY. [Concomitant]
     Active Substance: CRANBERRY
     Dosage: 120 MG

REACTIONS (3)
  - Pruritus [Recovering/Resolving]
  - Rash [Unknown]
  - Vulvovaginal discomfort [Unknown]

NARRATIVE: CASE EVENT DATE: 201904
